FAERS Safety Report 7922604-1 (Version None)
Quarter: 2011Q4

REPORT INFORMATION
  Report Type: 
  Country: None (occurrence: None)
  Receive Date: 20111117
  Receipt Date: 20110104
  Transmission Date: 20120403
  Serious: No
  Sender: FDA-Public Use
  Company Number: US-ALLERGAN-1100027US

PATIENT
  Sex: Female

DRUGS (1)
  1. COMBIGAN [Suspect]
     Indication: PRODUCT USED FOR UNKNOWN INDICATION
     Dosage: UNK

REACTIONS (4)
  - BURNING SENSATION [None]
  - ERYTHEMA OF EYELID [None]
  - ERYTHEMA [None]
  - EYELID IRRITATION [None]
